FAERS Safety Report 4524379-5 (Version None)
Quarter: 2004Q4

REPORT INFORMATION
  Report Type: 
  Country: None (occurrence: None)
  Receive Date: 20041119
  Receipt Date: 20040809
  Transmission Date: 20050328
  Serious: No
  Sender: FDA-Public Use
  Company Number: 208381

PATIENT
  Age: 67 Year
  Sex: Male

DRUGS (5)
  1. RAPTIVA [Suspect]
     Indication: PSORIASIS
     Dosage: 90 MG, 1/WEEK, SUBCUTANEOUS
     Route: 058
     Dates: start: 20040511
  2. ZYRTEC [Concomitant]
  3. TOPAL (ALGINIC ACID, ALUMINUM HYDROXIDE, MAGNESIUM CARBONATE) [Concomitant]
  4. ZOCOR [Concomitant]
  5. DIOVAN [Concomitant]

REACTIONS (1)
  - PSORIASIS [None]
